FAERS Safety Report 8499714-6 (Version None)
Quarter: 2012Q3

REPORT INFORMATION
  Report Type: 
  Country: None (occurrence: None)
  Receive Date: 20120710
  Receipt Date: 20120629
  Transmission Date: 20120928
  Serious: Yes (Hospitalization)
  Sender: FDA-Public Use
  Company Number: US-VERTEX PHARMACEUTICALS INC.-AE-2012-001920

PATIENT
  Weight: 61.29 kg

DRUGS (4)
  1. PEGINTERFERON ALFA-2A [Concomitant]
     Indication: HEPATITIS C
     Dates: start: 20111007, end: 20111211
  2. LEVOTHYROXINE SODIUM [Concomitant]
     Dates: start: 20111129
  3. INCIVEK [Suspect]
     Indication: HEPATITIS C
     Route: 048
     Dates: start: 20111007, end: 20111211
  4. RIBAVIRIN [Concomitant]
     Indication: HEPATITIS C
     Dates: start: 20111007, end: 20111211

REACTIONS (1)
  - DRUG RASH WITH EOSINOPHILIA AND SYSTEMIC SYMPTOMS [None]
